FAERS Safety Report 8973066 (Version 1)
Quarter: 2012Q4

REPORT INFORMATION
  Report Type: 
  Country: BR (occurrence: BR)
  Receive Date: 20121219
  Receipt Date: 20121219
  Transmission Date: 20130627
  Serious: Yes (Other)
  Sender: FDA-Public Use
  Company Number: BR-AMGEN-BRASP2012080949

PATIENT
  Age: 54 Year
  Sex: Female
  Weight: 82 kg

DRUGS (5)
  1. ENBREL [Suspect]
     Indication: RHEUMATOID ARTHRITIS
     Dosage: 50 mg, once weekly
     Route: 058
     Dates: start: 201210
  2. PREDNISONE [Concomitant]
     Dosage: UNK UNK, UNK
  3. ARAVA [Concomitant]
     Dosage: UNK UNK, UNK
  4. IBUPROFEN [Concomitant]
     Dosage: UNK UNK, UNK
  5. FLUOXETINE [Concomitant]
     Dosage: UNK UNK, UNK

REACTIONS (3)
  - Gastrointestinal disorder [Unknown]
  - Injection site erythema [Unknown]
  - Injection site warmth [Unknown]
